FAERS Safety Report 8803223 (Version 1)
Quarter: 2012Q4

REPORT INFORMATION
  Report Type: 
  Country: US (occurrence: US)
  Receive Date: 20120924
  Receipt Date: 20120924
  Transmission Date: 20130627
  Serious: Yes (Other)
  Sender: FDA-Public Use
  Company Number: US-ROCHE-1093941

PATIENT
  Sex: Female

DRUGS (4)
  1. XELODA [Suspect]
     Indication: RECTAL CANCER
     Route: 065
  2. XELODA [Suspect]
     Indication: METASTASES TO LUNG
  3. XELODA [Suspect]
     Indication: METASTASES TO LIVER
  4. AVASTIN [Suspect]
     Indication: RECTOSIGMOID CANCER
     Route: 065
     Dates: start: 200808

REACTIONS (1)
  - Disease progression [Unknown]
